FAERS Safety Report 5651484-2 (Version None)
Quarter: 2008Q1

REPORT INFORMATION
  Report Type: 
  Country: None (occurrence: None)
  Receive Date: 20080305
  Receipt Date: 20080225
  Transmission Date: 20080703
  Serious: Yes (Death)
  Sender: FDA-Public Use
  Company Number: US-GENENTECH-256564

PATIENT
  Age: 58 Year

DRUGS (9)
  1. RITUXAN [Suspect]
     Indication: B-CELL LYMPHOMA
     Dosage: 375 MG/KG, 1/MONTH
     Route: 042
  2. FLUDARABINE [Suspect]
     Indication: B-CELL LYMPHOMA
     Dosage: 25 MG/M2, UNK
     Route: 042
  3. MITOXANTRONE [Suspect]
     Indication: B-CELL LYMPHOMA
     Dosage: 10 MG/M2, UNK
     Route: 042
  4. DEXAMETHASONE TAB [Suspect]
     Indication: B-CELL LYMPHOMA
  5. CYCLOPHOSPHAMIDE [Suspect]
     Indication: B-CELL LYMPHOMA
  6. DOXORUBICIN HCL [Suspect]
     Indication: B-CELL LYMPHOMA
  7. VINCRISTINE [Suspect]
     Indication: B-CELL LYMPHOMA
  8. PREDNISONE TAB [Suspect]
     Indication: B-CELL LYMPHOMA
  9. INTRON A [Suspect]
     Indication: B-CELL LYMPHOMA

REACTIONS (1)
  - MYELODYSPLASTIC SYNDROME [None]
